FAERS Safety Report 5600021-7 (Version None)
Quarter: 2007Q4

REPORT INFORMATION
  Report Type: 
  Country: None (occurrence: None)
  Receive Date: 20071226
  Receipt Date: 20071009
  Transmission Date: 20080405
  Serious: Yes (Hospitalization)
  Sender: FDA-Public Use
  Company Number: 245980

PATIENT
  Age: 63 Year
  Sex: Male
  Weight: 97.5 kg

DRUGS (8)
  1. RAPTIVA [Suspect]
     Indication: PSORIASIS
     Dosage: 1 ML, 1/WWEK, SUBCUTANEOUS
     Route: 058
     Dates: start: 20070601, end: 20070601
  2. TOPICAL MEDICATIONS (GENERIC COMPONENTS (S) NOT KNOWN) [Concomitant]
  3. SOMA [Concomitant]
  4. MELOXICAM [Concomitant]
  5. AVODART [Concomitant]
  6. ALLOPURINOL [Concomitant]
  7. TOPROL-XL [Concomitant]
  8. SYNTHROID [Concomitant]

REACTIONS (1)
  - ARTHRITIS [None]
